FAERS Safety Report 10487801 (Version 2)
Quarter: 2014Q4

REPORT INFORMATION
  Report Type: Report from Study
  Country: US (occurrence: US)
  Receive Date: 20141001
  Receipt Date: 20141009
  Transmission Date: 20150528
  Serious: Yes (Hospitalization, Other)
  Sender: FDA-Public Use
  Company Number: US-TEVA-512789USA

PATIENT
  Age: 11 Month
  Sex: Female
  Weight: 8.4 kg

DRUGS (8)
  1. METHOTREXATE [Suspect]
     Active Substance: METHOTREXATE
     Indication: ACUTE LYMPHOCYTIC LEUKAEMIA
     Dosage: LAST ADMINISTERED DATE 04-SEP-2014
     Route: 037
     Dates: start: 20140428
  2. HYDROCORTISONE. [Suspect]
     Active Substance: HYDROCORTISONE
     Indication: ACUTE LYMPHOCYTIC LEUKAEMIA
     Dosage: LAST ADMINISTERED DATE 19-AUG-2014
     Route: 065
     Dates: start: 20140428
  3. CYCLOPHOSPHAMIDE. [Suspect]
     Active Substance: CYCLOPHOSPHAMIDE
     Indication: ACUTE LYMPHOCYTIC LEUKAEMIA
     Dosage: LAST ADMINISTERED DATE 19-SEP-2014
     Route: 065
     Dates: start: 20140428
  4. ETOPOSIDE. [Suspect]
     Active Substance: ETOPOSIDE
     Indication: ACUTE LYMPHOCYTIC LEUKAEMIA
     Dosage: LAST ADMINISTERED DATE 19-SEP-2014
     Route: 065
     Dates: start: 20140428
  5. CYTARABINE. [Suspect]
     Active Substance: CYTARABINE
     Indication: ACUTE LYMPHOCYTIC LEUKAEMIA
     Dosage: LAST ADMINISTERED DATE 19-AUG-2014
     Route: 065
     Dates: start: 20140428
  6. LESTAURTINIB [Suspect]
     Active Substance: LESTAURTINIB
     Indication: ACUTE LYMPHOCYTIC LEUKAEMIA
     Dosage: LAST ADMINISTERED DATE 22-SEP-2014
     Route: 065
     Dates: start: 20140428
  7. FOLINIC ACID [Suspect]
     Active Substance: LEUCOVORIN
     Indication: ACUTE LYMPHOCYTIC LEUKAEMIA
     Dosage: LAST ADMINISTERED DATE 06-SEP-2014
     Route: 065
     Dates: start: 20140428
  8. METHOTREXATE [Suspect]
     Active Substance: METHOTREXATE
     Dosage: LAST ADMINISTERED DATE 04-SEP-2014
     Route: 042
     Dates: start: 20140428

REACTIONS (7)
  - Hypotension [Recovered/Resolved]
  - Sepsis [Recovered/Resolved]
  - Enteritis infectious [Not Recovered/Not Resolved]
  - Enterococcal infection [Recovered/Resolved]
  - Hypoglycaemia [Recovered/Resolved]
  - Hypokalaemia [Recovered/Resolved]
  - Hypoalbuminaemia [Not Recovered/Not Resolved]

NARRATIVE: CASE EVENT DATE: 20140922
